FAERS Safety Report 5606773-4 (Version None)
Quarter: 2008Q1

REPORT INFORMATION
  Report Type: 
  Country: None (occurrence: None)
  Receive Date: 20080129
  Receipt Date: 20080117
  Transmission Date: 20080703
  Serious: Yes (Other)
  Sender: FDA-Public Use
  Company Number: US-PFIZER INC-2007070676

PATIENT
  Sex: Female
  Weight: 90.7 kg

DRUGS (8)
  1. LYRICA [Suspect]
     Indication: FIBROMYALGIA
     Dates: start: 20060101, end: 20071101
  2. KLONOPIN [Concomitant]
  3. TOPAMAX [Concomitant]
     Indication: MIGRAINE
  4. CYMBALTA [Concomitant]
     Indication: FIBROMYALGIA
  5. TYLENOL [Concomitant]
  6. SYNTHROID [Concomitant]
     Indication: THYROID DISORDER
  7. VYTORIN [Concomitant]
     Indication: BLOOD CHOLESTEROL
  8. ZANAFLEX [Concomitant]
     Indication: PAIN

REACTIONS (16)
  - APHASIA [None]
  - BEDRIDDEN [None]
  - BREAST DISCHARGE [None]
  - CEREBROVASCULAR ACCIDENT [None]
  - DIPLOPIA [None]
  - DYSPNOEA [None]
  - FACIAL BONES FRACTURE [None]
  - FALL [None]
  - FEELING ABNORMAL [None]
  - HYPOAESTHESIA [None]
  - HYPOTENSION [None]
  - MEMORY IMPAIRMENT [None]
  - MENTAL IMPAIRMENT [None]
  - MIGRAINE [None]
  - SOMNOLENCE [None]
  - VERTIGO [None]
